FAERS Safety Report 23216340 (Version 1)
Quarter: 2023Q4

REPORT INFORMATION
  Report Type: Spontaneous
  Country: SY (occurrence: SY)
  Receive Date: 20231122
  Receipt Date: 20231122
  Transmission Date: 20240110
  Serious: Yes (Death, Hospitalization, Other)
  Sender: FDA-Public Use
  Company Number: SY-NOVITIUMPHARMA-2023SYNVP01995

PATIENT
  Age: 45 Year
  Sex: Female

DRUGS (6)
  1. DEXAMETHASONE [Suspect]
     Active Substance: DEXAMETHASONE
     Indication: COVID-19
  2. LEVOFLOXACIN [Concomitant]
     Active Substance: LEVOFLOXACIN
     Indication: Anticoagulant therapy
  3. VANCOMYCIN [Concomitant]
     Active Substance: VANCOMYCIN
     Indication: Anticoagulant therapy
  4. ENOXAPARIN SODIUM [Concomitant]
     Active Substance: ENOXAPARIN SODIUM
     Indication: Anticoagulant therapy
  5. INSULIN NOS [Concomitant]
     Active Substance: INSULIN NOS
     Indication: Hyperglycaemia
  6. INSULIN NOS [Concomitant]
     Active Substance: INSULIN NOS
     Indication: Fluid replacement

REACTIONS (3)
  - Mucormycosis [Fatal]
  - Leukaemoid reaction [Fatal]
  - Off label use [Unknown]
